FAERS Safety Report 11052110 (Version 1)
Quarter: 2015Q2

REPORT INFORMATION
  Report Type: Spontaneous
  Country: IN (occurrence: IN)
  Receive Date: 20150421
  Receipt Date: 20150421
  Transmission Date: 20150821
  Serious: Yes (Other)
  Sender: FDA-Public Use
  Company Number: IN-CIPLA LTD.-2015IN03206

PATIENT

DRUGS (2)
  1. VALPROATE [Suspect]
     Active Substance: VALPROATE SODIUM
     Indication: SEIZURE
     Dosage: 300 MG, QD
     Route: 065
  2. TOPIRAMATE. [Suspect]
     Active Substance: TOPIRAMATE
     Indication: SEIZURE
     Dosage: 37.5 MG, QD
     Route: 065

REACTIONS (5)
  - Failure to thrive [Unknown]
  - Microcephaly [Unknown]
  - Hypertonia [Unknown]
  - Metabolic disorder [Recovered/Resolved]
  - Developmental delay [Unknown]
